FAERS Safety Report 23118804 (Version 2)
Quarter: 2023Q4

REPORT INFORMATION
  Report Type: Spontaneous
  Country: US (occurrence: None)
  Receive Date: 20231028
  Receipt Date: 20231102
  Transmission Date: 20240109
  Serious: Yes (Hospitalization, Other)
  Sender: FDA-Public Use
  Company Number: US-ROCHE-3443634

PATIENT
  Sex: Female
  Weight: 53.572 kg

DRUGS (3)
  1. ACTEMRA [Suspect]
     Active Substance: TOCILIZUMAB
     Indication: Rheumatoid arthritis
     Dosage: LAST INJECTION IN /MAY/2023
     Route: 058
     Dates: start: 2022
  2. ACTEMRA [Suspect]
     Active Substance: TOCILIZUMAB
  3. INLYTA [Concomitant]
     Active Substance: AXITINIB
     Indication: Neoplasm malignant
     Dates: start: 2019, end: 202309

REACTIONS (2)
  - Abscess [Unknown]
  - Renal cancer [Unknown]
